FAERS Safety Report 10016295 (Version 1)
Quarter: 2014Q1

REPORT INFORMATION
  Report Type: Spontaneous
  Country: US (occurrence: US)
  Receive Date: 20140317
  Receipt Date: 20140317
  Transmission Date: 20141002
  Serious: Yes (Other)
  Sender: FDA-Public Use
  Company Number: US-JNJFOC-20140307485

PATIENT
  Sex: 0

DRUGS (2)
  1. DOXORUBICIN [Suspect]
     Indication: HEPATOCELLULAR CARCINOMA
     Route: 042
  2. SORAFENIB [Suspect]
     Indication: HEPATOCELLULAR CARCINOMA
     Route: 065

REACTIONS (6)
  - Hepatocellular carcinoma [Unknown]
  - Hepatitis C [Unknown]
  - Cardiac failure congestive [Unknown]
  - General physical condition abnormal [Unknown]
  - Biliary tract disorder [Unknown]
  - Off label use [Unknown]
